FAERS Safety Report 20989050 (Version 1)
Quarter: 2022Q2

REPORT INFORMATION
  Report Type: Report from Study
  Country: US (occurrence: US)
  Receive Date: 20220621
  Receipt Date: 20220621
  Transmission Date: 20220721
  Serious: Yes (Hospitalization, Other)
  Sender: FDA-Public Use
  Company Number: US-CELGENE-USA-20220304493

PATIENT
  Age: 60 Year
  Sex: Female
  Weight: 102.06 kg

DRUGS (12)
  1. REVLIMID [Suspect]
     Active Substance: LENALIDOMIDE
     Indication: Plasma cell myeloma in remission
     Dosage: 25 MILLIGRAM
     Route: 048
     Dates: start: 201809
  2. REVLIMID [Suspect]
     Active Substance: LENALIDOMIDE
     Dosage: 10 MILLIGRAM
     Route: 048
     Dates: start: 202002
  3. ELIQUIS [Concomitant]
     Active Substance: APIXABAN
     Indication: Atrial fibrillation
  4. AMLODIPINE [Concomitant]
     Active Substance: AMLODIPINE BESYLATE
  5. FUROSEMIDE [Concomitant]
     Active Substance: FUROSEMIDE
  6. TELMISARTAN [Concomitant]
     Active Substance: TELMISARTAN
  7. VALACYCLOVIR [Concomitant]
     Active Substance: VALACYCLOVIR HYDROCHLORIDE
  8. FLUOXETINE [Concomitant]
     Active Substance: FLUOXETINE HYDROCHLORIDE
  9. POTASSIUM [Concomitant]
     Active Substance: POTASSIUM
  10. LANSOPRAZOLE [Concomitant]
     Active Substance: LANSOPRAZOLE
  11. ZOTRIM [Concomitant]
  12. CALCITONINE [CALCITONIN] [Concomitant]

REACTIONS (3)
  - Hepatic enzyme increased [Recovered/Resolved]
  - Cholangiocarcinoma [Not Recovered/Not Resolved]
  - Cholangitis [Unknown]

NARRATIVE: CASE EVENT DATE: 20201015
